FAERS Safety Report 22645897 (Version 2)
Quarter: 2023Q4

REPORT INFORMATION
  Report Type: Spontaneous
  Country: US (occurrence: US)
  Receive Date: 20230627
  Receipt Date: 20231005
  Transmission Date: 20240110
  Serious: No
  Sender: FDA-Public Use
  Company Number: US-ELI_LILLY_AND_COMPANY-US202306013337

PATIENT
  Sex: Female

DRUGS (9)
  1. FORTEO [Suspect]
     Active Substance: TERIPARATIDE
     Indication: Fracture
     Dosage: UNK UNK, UNKNOWN
     Route: 065
     Dates: start: 1992
  2. FORTEO [Suspect]
     Active Substance: TERIPARATIDE
     Indication: Fracture
     Dosage: UNK UNK, UNKNOWN
     Route: 065
     Dates: start: 1992
  3. FORTEO [Suspect]
     Active Substance: TERIPARATIDE
     Indication: Pain
     Dosage: UNK UNK, UNKNOWN
     Route: 065
     Dates: start: 20230513
  4. FORTEO [Suspect]
     Active Substance: TERIPARATIDE
     Indication: Pain
     Dosage: UNK UNK, UNKNOWN
     Route: 065
     Dates: start: 20230513
  5. FORTEO [Suspect]
     Active Substance: TERIPARATIDE
     Dosage: UNK UNK, UNKNOWN
     Route: 065
     Dates: start: 202306, end: 20230618
  6. FORTEO [Suspect]
     Active Substance: TERIPARATIDE
     Dosage: UNK UNK, UNKNOWN
     Route: 065
     Dates: start: 202306, end: 20230618
  7. FORTEO [Suspect]
     Active Substance: TERIPARATIDE
     Dosage: UNK UNK, UNKNOWN
     Route: 065
  8. FORTEO [Suspect]
     Active Substance: TERIPARATIDE
     Dosage: UNK UNK, UNKNOWN
     Route: 065
  9. FORTEO [Suspect]
     Active Substance: TERIPARATIDE
     Dosage: UNK UNK, UNKNOWN
     Route: 065

REACTIONS (10)
  - Pain in extremity [Not Recovered/Not Resolved]
  - Back pain [Not Recovered/Not Resolved]
  - Feeling abnormal [Unknown]
  - Off label use [Unknown]
  - Visual impairment [Unknown]
  - Mass [Not Recovered/Not Resolved]
  - Skin discolouration [Recovering/Resolving]
  - Incorrect product administration duration [Unknown]
  - Diarrhoea [Not Recovered/Not Resolved]
  - Headache [Not Recovered/Not Resolved]
